FAERS Safety Report 7015085-6 (Version None)
Quarter: 2010Q3

REPORT INFORMATION
  Report Type: 
  Country: None (occurrence: None)
  Receive Date: 20100927
  Receipt Date: 20100921
  Transmission Date: 20110219
  Serious: Yes (Other)
  Sender: FDA-Public Use
  Company Number: US-SANOFI-AVENTIS-2010SA047560

PATIENT
  Age: 61 Year
  Sex: Female
  Weight: 65.7 kg

DRUGS (7)
  1. MULTAQ [Suspect]
     Indication: ATRIAL FIBRILLATION
     Route: 048
     Dates: start: 20100606, end: 20100615
  2. MULTAQ [Suspect]
     Indication: ATRIAL FLUTTER
     Route: 048
     Dates: start: 20100606, end: 20100615
  3. COUMADIN [Concomitant]
     Indication: ATRIAL FIBRILLATION
     Dates: start: 20100606
  4. AMLODIPINE [Concomitant]
     Indication: HYPERTENSION
     Dates: start: 20100223
  5. HYDRALAZINE HCL [Concomitant]
     Indication: HYPERTENSION
     Route: 048
     Dates: start: 20100606
  6. ASPIRIN [Concomitant]
  7. ALDACTONE [Concomitant]
     Route: 048

REACTIONS (2)
  - BLOOD CREATININE INCREASED [None]
  - RENAL FAILURE [None]
